FAERS Safety Report 16415944 (Version 3)
Quarter: 2020Q3

REPORT INFORMATION
  Report Type: Spontaneous
  Country: US (occurrence: US)
  Receive Date: 20190611
  Receipt Date: 20200806
  Transmission Date: 20201102
  Serious: No
  Sender: FDA-Public Use
  Company Number: US-SA-2019SA156958

PATIENT

DRUGS (2)
  1. DUPIXENT [Suspect]
     Active Substance: DUPILUMAB
     Indication: DERMATITIS
     Dosage: 2 ML, QOW
     Route: 058
     Dates: start: 20190201
  2. DUPIXENT [Suspect]
     Active Substance: DUPILUMAB
     Dosage: 300 MG, QOW
     Route: 058
     Dates: start: 201908

REACTIONS (3)
  - Injection site swelling [Recovered/Resolved]
  - Ocular hyperaemia [Unknown]
  - Dry eye [Unknown]

NARRATIVE: CASE EVENT DATE: 201905
